FAERS Safety Report 8931764 (Version 1)
Quarter: 2012Q4

REPORT INFORMATION
  Report Type: 
  Country: TR (occurrence: TR)
  Receive Date: 20121128
  Receipt Date: 20121128
  Transmission Date: 20130627
  Serious: Yes (Hospitalization, Other)
  Sender: FDA-Public Use
  Company Number: TR-AMGEN-TURSP2012075660

PATIENT
  Age: 60 Year
  Sex: Female

DRUGS (1)
  1. ENBREL [Suspect]
     Indication: RHEUMATOID ARTHRITIS
     Dosage: 50 mg, weekly
     Route: 058
     Dates: start: 20120215, end: 20121101

REACTIONS (5)
  - Pain [Recovered/Resolved]
  - Swelling [Recovered/Resolved]
  - Dyspnoea [Recovering/Resolving]
  - Sleep apnoea syndrome [Recovering/Resolving]
  - Gait disturbance [Recovered/Resolved]
